FAERS Safety Report 14194046 (Version 1)
Quarter: 2017Q4

REPORT INFORMATION
  Report Type: Spontaneous
  Country: FR (occurrence: FR)
  Receive Date: 20171116
  Receipt Date: 20171116
  Transmission Date: 20180321
  Serious: Yes (Hospitalization)
  Sender: FDA-Public Use
  Company Number: FR-MERCK KGAA-2034240

PATIENT
  Age: 52 Year
  Sex: Female

DRUGS (1)
  1. NOVOTHYROX [Suspect]
     Active Substance: LEVOTHYROXINE SODIUM
     Indication: PRODUCT USED FOR UNKNOWN INDICATION

REACTIONS (9)
  - Balance disorder [None]
  - Dizziness [None]
  - Arthralgia [None]
  - Loss of consciousness [None]
  - Fatigue [None]
  - Blood thyroid stimulating hormone abnormal [None]
  - Fall [None]
  - Urinary tract infection [None]
  - Disturbance in attention [None]
